FAERS Safety Report 16228274 (Version 1)
Quarter: 2019Q2

REPORT INFORMATION
  Report Type: Spontaneous
  Country: US (occurrence: US)
  Receive Date: 20190422
  Receipt Date: 20190422
  Transmission Date: 20190711
  Serious: Yes (Death)
  Sender: FDA-Public Use
  Company Number: None

PATIENT
  Age: 70 Year
  Sex: Male
  Weight: 85.5 kg

DRUGS (5)
  1. LOVENOX [Suspect]
     Active Substance: ENOXAPARIN SODIUM
     Indication: ATRIAL FIBRILLATION
     Route: 058
     Dates: start: 20190320, end: 20190325
  2. WARFARIN [Suspect]
     Active Substance: WARFARIN
     Indication: ATRIAL FIBRILLATION
     Route: 048
     Dates: start: 20190320, end: 20190325
  3. WARFARIN [Concomitant]
     Active Substance: WARFARIN
     Dates: start: 20190320, end: 20190325
  4. LOVENOX [Concomitant]
     Active Substance: ENOXAPARIN SODIUM
     Dates: start: 20190320, end: 20190325
  5. ASPIRIN. [Concomitant]
     Active Substance: ASPIRIN
     Dates: start: 20190320, end: 20190325

REACTIONS (10)
  - Transfusion [None]
  - Dysuria [None]
  - Intra-abdominal haemorrhage [None]
  - Complication associated with device [None]
  - Abdominal pain [None]
  - Heart rate increased [None]
  - Haemoglobin decreased [None]
  - Packed red blood cell transfusion [None]
  - Intra-abdominal haematoma [None]
  - Hypotension [None]

NARRATIVE: CASE EVENT DATE: 20190327
